FAERS Safety Report 5585466-6 (Version None)
Quarter: 2008Q1

REPORT INFORMATION
  Report Type: 
  Country: None (occurrence: None)
  Receive Date: 20080104
  Receipt Date: 20080104
  Transmission Date: 20080703
  Serious: Yes (Hospitalization, Other)
  Sender: FDA-Public Use
  Company Number: None

PATIENT
  Age: 43 Year
  Sex: Male
  Weight: 99.7913 kg

DRUGS (1)
  1. MIRAPEX [Suspect]
     Indication: PARKINSON'S DISEASE
     Dosage: MIRAPEX 1 MG TABLETS THREE TIMES DAILY PO
     Route: 048
     Dates: start: 20061020, end: 20071119

REACTIONS (13)
  - ABNORMAL BEHAVIOUR [None]
  - AMNESIA [None]
  - DECREASED INTEREST [None]
  - DEPRESSION [None]
  - DISEASE PROGRESSION [None]
  - EARLY MORNING AWAKENING [None]
  - ERECTILE DYSFUNCTION [None]
  - HYPERSEXUALITY [None]
  - IRRITABILITY [None]
  - LIBIDO INCREASED [None]
  - MEMORY IMPAIRMENT [None]
  - PARKINSON'S DISEASE [None]
  - SLEEP DISORDER [None]
